FAERS Safety Report 13922507 (Version 1)
Quarter: 2017Q3

REPORT INFORMATION
  Report Type: Spontaneous
  Country: US (occurrence: US)
  Receive Date: 20170830
  Receipt Date: 20170830
  Transmission Date: 20171127
  Serious: Yes (Other)
  Sender: FDA-Public Use
  Company Number: US-LUNDBECK-DKLU2036173

PATIENT
  Age: 23 Year
  Sex: Female

DRUGS (1)
  1. SABRIL [Suspect]
     Active Substance: VIGABATRIN
     Indication: NEOPLASM MALIGNANT
     Route: 048
     Dates: start: 20160808

REACTIONS (1)
  - Retinal injury [Unknown]

NARRATIVE: CASE EVENT DATE: 20170822
